FAERS Safety Report 20795453 (Version 1)
Quarter: 2022Q2

REPORT INFORMATION
  Report Type: Spontaneous
  Country: US (occurrence: US)
  Receive Date: 20220506
  Receipt Date: 20220506
  Transmission Date: 20220720
  Serious: Yes (Hospitalization)
  Sender: FDA-Public Use
  Company Number: US-KARYOPHARM-2022KPT000521

PATIENT

DRUGS (10)
  1. XPOVIO [Suspect]
     Active Substance: SELINEXOR
     Indication: Plasma cell myeloma
     Dosage: 80 MG, WEEKLY
     Route: 048
     Dates: start: 20220419, end: 2022
  2. TEMOVATE [Concomitant]
     Active Substance: CLOBETASOL PROPIONATE
  3. TAMSULOSIN [Concomitant]
     Active Substance: TAMSULOSIN
  4. ELIQUIS [Concomitant]
     Active Substance: APIXABAN
  5. LASIX [Concomitant]
     Active Substance: FUROSEMIDE
  6. ACYCLOVIR [Concomitant]
     Active Substance: ACYCLOVIR
  7. FINASTERIDE [Concomitant]
     Active Substance: FINASTERIDE
  8. NORVASC [Concomitant]
     Active Substance: AMLODIPINE BESYLATE
  9. PROPRANOLOL [Concomitant]
     Active Substance: PROPRANOLOL HYDROCHLORIDE
  10. LYRICA [Concomitant]
     Active Substance: PREGABALIN

REACTIONS (6)
  - Renal failure [Unknown]
  - Pulmonary oedema [Recovering/Resolving]
  - Arthralgia [Unknown]
  - Dizziness [Unknown]
  - Asthenia [Unknown]
  - Dyspnoea [Unknown]

NARRATIVE: CASE EVENT DATE: 20220401
